FAERS Safety Report 4435891-1 (Version None)
Quarter: 2004Q3

REPORT INFORMATION
  Report Type: 
  Country: None (occurrence: None)
  Receive Date: 20040726
  Receipt Date: 20040302
  Transmission Date: 20050211
  Serious: No
  Sender: FDA-Public Use
  Company Number: USA040360706

PATIENT
  Age: 75 Year
  Sex: Female

DRUGS (3)
  1. FORTEO [Suspect]
     Indication: OSTEOPOROSIS
     Dates: start: 20031001
  2. MULTIVITAMIN [Concomitant]
  3. POTASSIUM [Concomitant]

REACTIONS (2)
  - CONSTIPATION [None]
  - FAECES HARD [None]
